FAERS Safety Report 7832375-5 (Version None)
Quarter: 2011Q4

REPORT INFORMATION
  Report Type: 
  Country: None (occurrence: None)
  Receive Date: 20111022
  Receipt Date: 20111011
  Transmission Date: 20120403
  Serious: Yes (Hospitalization, Other)
  Sender: FDA-Public Use
  Company Number: US-BAYER-201034258NA

PATIENT
  Age: 37 Year
  Sex: Female

DRUGS (15)
  1. SINGULAIR [Concomitant]
  2. ALPRAZOLAM [Concomitant]
     Dosage: UNK UNK, BID
  3. YAZ [Suspect]
     Indication: PREMENSTRUAL SYNDROME
     Dosage: UNK UNK, QD
     Route: 048
     Dates: start: 20070901, end: 20080901
  4. GEMFIBROZIL [Concomitant]
  5. KETOROLAC TROMETHAMINE [Concomitant]
  6. IMITREX [Concomitant]
  7. HYDROXYZINE [Concomitant]
  8. ZOLOFT [Concomitant]
  9. AMBIEN [Concomitant]
  10. PRILOSEC [Concomitant]
  11. ZANTAC [Concomitant]
  12. XANAX [Concomitant]
  13. LEXAPRO [Concomitant]
  14. TORADOL [Concomitant]
  15. DILAUDID [Concomitant]

REACTIONS (6)
  - PULMONARY EMBOLISM [None]
  - PANCREATITIS [None]
  - CHOLECYSTITIS CHRONIC [None]
  - PAIN [None]
  - CHOLECYSTECTOMY [None]
  - ANXIETY [None]
